FAERS Safety Report 7307189-5 (Version None)
Quarter: 2011Q1

REPORT INFORMATION
  Report Type: 
  Country: None (occurrence: None)
  Receive Date: 20110223
  Receipt Date: 20110214
  Transmission Date: 20110831
  Serious: No
  Sender: FDA-Public Use
  Company Number: US-JNJFOC-20110204762

PATIENT
  Sex: Male
  Weight: 89.36 kg

DRUGS (6)
  1. FENTANYL-100 [Suspect]
     Indication: BONE PAIN
     Route: 062
  2. FENTANYL-100 [Suspect]
     Indication: BONE PAIN
     Route: 062
  3. FENTANYL-100 [Suspect]
     Indication: ARTHRALGIA
     Route: 062
  4. FENTANYL-100 [Suspect]
     Indication: ARTHRALGIA
     Route: 062
  5. AMOXICILLIN [Suspect]
     Indication: SINUSITIS
     Route: 048
  6. OXYCODONE [Concomitant]
     Indication: BREAKTHROUGH PAIN
     Route: 048

REACTIONS (9)
  - MALAISE [None]
  - DRUG INEFFECTIVE [None]
  - WRONG TECHNIQUE IN DRUG USAGE PROCESS [None]
  - POLLAKIURIA [None]
  - FEELING ABNORMAL [None]
  - HYPERHIDROSIS [None]
  - PYREXIA [None]
  - PAIN [None]
  - SINUSITIS [None]
